FAERS Safety Report 6882601-4 (Version None)
Quarter: 2010Q3

REPORT INFORMATION
  Report Type: 
  Country: None (occurrence: None)
  Receive Date: 20100729
  Receipt Date: 20100722
  Transmission Date: 20110219
  Serious: Yes (Hospitalization)
  Sender: FDA-Public Use
  Company Number: US-GILEAD-2010-0030193

PATIENT
  Sex: Male

DRUGS (15)
  1. LETAIRIS [Suspect]
     Indication: PULMONARY ARTERIAL HYPERTENSION
     Route: 048
     Dates: start: 20081007
  2. PERCOCET [Concomitant]
  3. LACTOBACILLUS [Concomitant]
  4. VITAMIN D [Concomitant]
  5. ALLOPURINOL [Concomitant]
  6. TAMSULOSIN HCL [Concomitant]
  7. CLOPIDOGREL [Concomitant]
  8. AVELOX [Concomitant]
  9. SIMVASTIN [Concomitant]
  10. MAGNESIUM [Concomitant]
  11. TEMAZEPAM [Concomitant]
  12. ACETAMINOPHEN [Concomitant]
  13. ZOLPIDEM [Concomitant]
  14. NEBULIZER [Concomitant]
  15. ACETYLCLYSTEINE [Concomitant]

REACTIONS (3)
  - CARDIAC FAILURE CONGESTIVE [None]
  - CHEST PAIN [None]
  - PNEUMONIA [None]
